FAERS Safety Report 5009494-4 (Version None)
Quarter: 2006Q2

REPORT INFORMATION
  Report Type: 
  Country: None (occurrence: None)
  Receive Date: 20060522
  Receipt Date: 20060508
  Transmission Date: 20061013
  Serious: Yes (Other)
  Sender: FDA-Public Use
  Company Number: 2006S1000073

PATIENT
  Age: 85 Year
  Sex: Male
  Weight: 84 kg

DRUGS (8)
  1. CUBICIN [Suspect]
     Indication: ARTHRITIS INFECTIVE
     Dosage: 375 MG; Q24H; IV
     Route: 042
     Dates: start: 20051201, end: 20060221
  2. CUBICIN [Suspect]
     Indication: STAPHYLOCOCCAL INFECTION
     Dosage: 375 MG; Q24H; IV
     Route: 042
     Dates: start: 20051201, end: 20060221
  3. SIMVASTATIN [Concomitant]
  4. TAMSULOSIN HCL [Concomitant]
  5. HYDROCHLORIDE [Concomitant]
  6. RIFAMPIN [Concomitant]
  7. GENTAMICIN [Concomitant]
  8. IRON [Concomitant]

REACTIONS (16)
  - ANAEMIA [None]
  - ANOREXIA [None]
  - ARTHRALGIA [None]
  - C-REACTIVE PROTEIN INCREASED [None]
  - CRYPTOGENIC ORGANIZING PNEUMONIA [None]
  - DECREASED APPETITE [None]
  - FATIGUE [None]
  - LOOSE BODY IN JOINT [None]
  - LUNG INFILTRATION [None]
  - MALAISE [None]
  - NAUSEA [None]
  - PULMONARY OEDEMA [None]
  - PYREXIA [None]
  - RED BLOOD CELL SEDIMENTATION RATE INCREASED [None]
  - SERUM FERRITIN INCREASED [None]
  - WEIGHT DECREASED [None]
